FAERS Safety Report 4612293-6 (Version None)
Quarter: 2005Q1

REPORT INFORMATION
  Report Type: 
  Country: None (occurrence: None)
  Receive Date: 20050316
  Receipt Date: 20050308
  Transmission Date: 20050727
  Serious: Yes (Other)
  Sender: FDA-Public Use
  Company Number: 200414811BCC

PATIENT
  Age: 53 Year
  Sex: Male
  Weight: 78.9259 kg

DRUGS (9)
  1. ALEVE [Suspect]
     Indication: ARTHRALGIA
     Dosage: SEE IMAGE
     Route: 048
     Dates: start: 20040929, end: 20041004
  2. ALEVE [Suspect]
     Indication: ARTHRALGIA
     Dosage: SEE IMAGE
     Route: 048
     Dates: start: 20041005
  3. SYNTHROID [Concomitant]
  4. GLUCOSAMINE [Concomitant]
  5. MSM [Concomitant]
  6. SAW PALMETTO [Concomitant]
  7. COD LIVER OIL [Concomitant]
  8. ANTIOXIDANT (OPC-3) [Concomitant]
  9. POTASSIUM CHLORIDE [Concomitant]

REACTIONS (1)
  - BLOOD PRESSURE INCREASED [None]
